FAERS Safety Report 15551775 (Version 5)
Quarter: 2019Q4

REPORT INFORMATION
  Report Type: Spontaneous
  Country: US (occurrence: US)
  Receive Date: 20181025
  Receipt Date: 20191022
  Transmission Date: 20200122
  Serious: Yes (Life-Threatening, Hospitalization)
  Sender: FDA-Public Use
  Company Number: US-ASTRAZENECA-2018SF25481

PATIENT
  Age: 891 Month
  Sex: Female
  Weight: 74.8 kg

DRUGS (13)
  1. PREDNISONE. [Concomitant]
     Active Substance: PREDNISONE
     Dosage: 125.0MG UNKNOWN
     Dates: start: 201710, end: 201710
  2. METHYLPREDNISOLONE. [Concomitant]
     Active Substance: METHYLPREDNISOLONE
     Dosage: 240 MG FOR 5 DAYS
     Dates: start: 201902
  3. FASENRA [Suspect]
     Active Substance: BENRALIZUMAB
     Indication: ASTHMA
     Route: 058
     Dates: start: 201809
  4. ALBUTEROL. [Concomitant]
     Active Substance: ALBUTEROL
     Indication: DYSPNOEA
     Dosage: NEBULIZER: 3 ML SOLUTION/2.5 MG, USES IT EVERY 4 HOURS, INHALER STARTED PRIOR TO NEBULIZER: 2 PUF...
     Route: 055
  5. CALCIUM [Concomitant]
     Active Substance: CALCIUM
  6. VITAMIN D3 [Concomitant]
     Active Substance: CHOLECALCIFEROL
  7. PROBIOTICS [Concomitant]
     Active Substance: PROBIOTICS NOS
  8. VENTOLIN [Concomitant]
     Active Substance: ALBUTEROL SULFATE
     Indication: DYSPNOEA
     Route: 055
  9. ALBUTEROL. [Concomitant]
     Active Substance: ALBUTEROL
     Indication: WHEEZING
     Dosage: NEBULIZER: 3 ML SOLUTION/2.5 MG, USES IT EVERY 4 HOURS, INHALER STARTED PRIOR TO NEBULIZER: 2 PUF...
     Route: 055
  10. PREDNISONE. [Concomitant]
     Active Substance: PREDNISONE
     Dosage: DECREASED BY 4 MG DAILY FOR 6 DAYS UNKNOWN
  11. ALBUTEROL. [Concomitant]
     Active Substance: ALBUTEROL
     Indication: DYSPNOEA
     Dosage: NEBULIZER: 3 ML SOLUTION/2.5 MG, USES IT EVERY 4 HOURS, INHALER STARTED PRIOR TO NEBULIZER: 2 PUF...
     Route: 055
  12. VENTOLIN [Concomitant]
     Active Substance: ALBUTEROL SULFATE
     Indication: WHEEZING
     Route: 055
  13. VENTOLIN [Concomitant]
     Active Substance: ALBUTEROL SULFATE
     Indication: ASTHMA
     Route: 055

REACTIONS (18)
  - Dyspnoea [Unknown]
  - Dizziness [Unknown]
  - Malaise [Unknown]
  - Osteopenia [Unknown]
  - Onychomadesis [Unknown]
  - Respiratory arrest [Unknown]
  - Cataract [Unknown]
  - Dyspnoea exertional [Unknown]
  - Bone density increased [Unknown]
  - Rash [Unknown]
  - Adverse drug reaction [Unknown]
  - Nasal congestion [Unknown]
  - Alopecia [Unknown]
  - Depression [Unknown]
  - Blood glucose decreased [Unknown]
  - Hypotension [Unknown]
  - Asthenia [Unknown]
  - Headache [Unknown]

NARRATIVE: CASE EVENT DATE: 201809
